FAERS Safety Report 7936801-2 (Version None)
Quarter: 2011Q4

REPORT INFORMATION
  Report Type: 
  Country: None (occurrence: None)
  Receive Date: 20111123
  Receipt Date: 20111116
  Transmission Date: 20120403
  Serious: Yes (Death, Other)
  Sender: FDA-Public Use
  Company Number: JP-ROCHE-1014297

PATIENT
  Sex: Female

DRUGS (2)
  1. PEGASYS [Suspect]
     Indication: HEPATIC CIRRHOSIS
     Dosage: DOSAGE IS UNCERTAIN.
     Route: 058
     Dates: start: 20110825, end: 20111013
  2. COPEGUS [Suspect]
     Indication: HEPATIC CIRRHOSIS
     Dosage: DOSAGE IS UNCERTAIN.
     Route: 048
     Dates: start: 20110825, end: 20111013

REACTIONS (2)
  - PLATELET COUNT DECREASED [None]
  - CEREBRAL HAEMORRHAGE [None]
